FAERS Safety Report 5177508-7 (Version None)
Quarter: 2006Q4

REPORT INFORMATION
  Report Type: 
  Country: None (occurrence: None)
  Receive Date: 20061207
  Receipt Date: 20061130
  Transmission Date: 20070319
  Serious: Yes (Death, Other)
  Sender: FDA-Public Use
  Company Number: 163-21880-06110376

PATIENT
  Age: 77 Year
  Sex: Female

DRUGS (1)
  1. REVLIMID [Suspect]
     Indication: CHRONIC MYELOID LEUKAEMIA
     Dosage: 25 MG, QD X21 DAYS THEN 7 DAYS OFF, ORAL
     Route: 048
     Dates: start: 20060923

REACTIONS (3)
  - ELECTROLYTE IMBALANCE [None]
  - MULTI-ORGAN FAILURE [None]
  - PANCYTOPENIA [None]
